FAERS Safety Report 24382237 (Version 2)
Quarter: 2024Q4

REPORT INFORMATION
  Report Type: Report from Study
  Country: CH (occurrence: CH)
  Receive Date: 20241001
  Receipt Date: 20241008
  Transmission Date: 20250115
  Serious: Yes (Other)
  Sender: EMD SERONO INC
  Company Number: CH-Merck Healthcare KGaA-2024051500

PATIENT
  Sex: Female
  Weight: 74 kg

DRUGS (6)
  1. REBIF [Suspect]
     Active Substance: INTERFERON BETA-1A
     Indication: Multiple sclerosis
     Route: 058
     Dates: start: 20120220
  2. LOSARTAN [Concomitant]
     Active Substance: LOSARTAN
     Indication: Product used for unknown indication
     Dosage: FOR ABOUT 1.5 YEARS (AS OF 30-SEP-2024)
  3. ASPIRIN [Concomitant]
     Active Substance: ASPIRIN
     Indication: Product used for unknown indication
     Dosage: FOR ABOUT 1.5 YEARS (AS OF 30-SEP-2024)
  4. AMLODIPINE [Concomitant]
     Active Substance: AMLODIPINE BESYLATE
     Indication: Product used for unknown indication
     Dosage: FOR ABOUT 1.5 YEARS (AS OF 30-SEP-2024)
  5. ROSUVASTATIN [Concomitant]
     Active Substance: ROSUVASTATIN
     Indication: Product used for unknown indication
     Dosage: FOR ABOUT 1.5 YEARS (AS OF 30-SEP-2024)
  6. ESTROGENS [Concomitant]
     Active Substance: ESTROGENS
     Indication: Product used for unknown indication
     Dosage: FOR YEARS (AS OF 30-SEP-2024)

REACTIONS (1)
  - Breast cancer female [Not Recovered/Not Resolved]
